FAERS Safety Report 12013170 (Version 3)
Quarter: 2016Q1

REPORT INFORMATION
  Report Type: Report from Study
  Country: HU (occurrence: HU)
  Receive Date: 20160205
  Receipt Date: 20160218
  Transmission Date: 20160526
  Serious: Yes (Hospitalization)
  Sender: FDA-Public Use
  Company Number: HU-KADMON PHARMACEUTICALS, LLC-KAD201602-000384

PATIENT
  Age: 73 Year
  Sex: Female

DRUGS (4)
  1. BETALOC [Concomitant]
     Active Substance: METOPROLOL TARTRATE
  2. VIEKIRAX [Suspect]
     Active Substance: OMBITASVIR\PARITAPREVIR\RITONAVIR
     Indication: CHRONIC HEPATITIS C
     Dosage: FILM-COATED TABLET, 12.5/75/50 MG; TWO TABLETS PER DAY
     Route: 048
     Dates: start: 20160114, end: 20160126
  3. RIBAVIRIN 200 MG [Suspect]
     Active Substance: RIBAVIRIN
     Indication: CHRONIC HEPATITIS C
     Dosage: FILM-COATED TABLET, 400 MG IN THE MORNING AND 600 MG IN THE EVENING
     Route: 048
     Dates: start: 20160114, end: 20160126
  4. EXVIERA 250 MG [Suspect]
     Active Substance: DASABUVIR
     Indication: CHRONIC HEPATITIS C
     Dosage: FILM-COATED TABLET
     Route: 048
     Dates: start: 20160114, end: 20160126

REACTIONS (2)
  - Blood bilirubin increased [Not Recovered/Not Resolved]
  - Jaundice [Recovered/Resolved]

NARRATIVE: CASE EVENT DATE: 20160125
